FAERS Safety Report 9837788 (Version 1)
Quarter: 2013Q4

REPORT INFORMATION
  Report Type: Spontaneous
  Country: US (occurrence: None)
  Receive Date: 20131202
  Receipt Date: 20131202
  Transmission Date: 20140711
  Serious: Yes (Other)
  Sender: FDA-Public Use
  Company Number: USEN-9A7MHX

PATIENT
  Sex: Female

DRUGS (1)
  1. DUROPREP [Suspect]
     Indication: PREOPERATIVE CARE
     Dosage: SINGLE APPLICATION
     Route: 061

REACTIONS (1)
  - Thermal burn [None]
